FAERS Safety Report 13079493 (Version 1)
Quarter: 2017Q1

REPORT INFORMATION
  Report Type: Report from Study
  Country: None (occurrence: BR)
  Receive Date: 20170103
  Receipt Date: 20170103
  Transmission Date: 20170428
  Serious: Yes (Hospitalization)
  Sender: FDA-Public Use
  Company Number: BR-ABBVIE-16K-020-1824549-00

PATIENT
  Age: 62 Year
  Sex: Female

DRUGS (3)
  1. TRAMAL [Concomitant]
     Active Substance: TRAMADOL
     Indication: PAIN
     Dosage: FORM OF ADMINISTRATION: LIQUID
     Route: 050
     Dates: start: 20161115
  2. HUMIRA [Suspect]
     Active Substance: ADALIMUMAB
     Indication: COLITIS ULCERATIVE
     Dosage: LOADING DOSE
     Route: 058
     Dates: start: 20161212, end: 20161212
  3. OMEPRAZOLE. [Concomitant]
     Active Substance: OMEPRAZOLE
     Indication: GASTRIC DISORDER
     Dosage: MORE THAN 1 TABLET DAILY
     Route: 048
     Dates: start: 20161112

REACTIONS (4)
  - Haemorrhage [Recovered/Resolved]
  - Cellulitis [Recovering/Resolving]
  - Dysgraphia [Unknown]
  - Pain [Unknown]

NARRATIVE: CASE EVENT DATE: 201612
